FAERS Safety Report 10176917 (Version 1)
Quarter: 2014Q2

REPORT INFORMATION
  Report Type: Spontaneous
  Country: US (occurrence: US)
  Receive Date: 20140516
  Receipt Date: 20140516
  Transmission Date: 20141212
  Serious: No
  Sender: FDA-Public Use
  Company Number: US-PFIZER INC-2014132594

PATIENT
  Age: 41 Year
  Sex: Female

DRUGS (11)
  1. LYRICA [Suspect]
     Indication: NEUROPATHY PERIPHERAL
     Dosage: 75 MG, DAILY
     Dates: start: 201405
  2. LYRICA [Suspect]
     Dosage: 75 MG, 2X/DAY
  3. LYRICA [Suspect]
     Dosage: UNK, 2X/DAY (2 CAPSULE OF 75MG IN MORNING AND 75MG IN EVENING)
  4. LYRICA [Suspect]
     Dosage: 150 MG, 2X/DAY
  5. METFORMIN [Concomitant]
     Dosage: 2 G, DAILY
  6. SPIRONOLACTONE [Concomitant]
     Dosage: 25 MG, DAILY
  7. REQUIP XL [Concomitant]
     Dosage: 25 MG, DAILY
  8. VITAMIN B12 [Concomitant]
     Dosage: UNK
  9. VITAMIN D [Concomitant]
     Dosage: UNK
  10. ALLEGRA [Concomitant]
     Dosage: 180 MG, DAILY
  11. PRILOSEC [Concomitant]
     Indication: GASTROOESOPHAGEAL REFLUX DISEASE
     Dosage: 40 MG, DAILY

REACTIONS (1)
  - Somnolence [Unknown]
